FAERS Safety Report 5490975-4 (Version None)
Quarter: 2007Q4

REPORT INFORMATION
  Report Type: 
  Country: None (occurrence: None)
  Receive Date: 20071019
  Receipt Date: 20071010
  Transmission Date: 20080405
  Serious: Yes (Other)
  Sender: FDA-Public Use
  Company Number: GB-PFIZER INC-2007084411

PATIENT
  Age: 27 Year
  Sex: Male
  Weight: 102 kg

DRUGS (3)
  1. CHAMPIX [Suspect]
     Indication: SMOKING CESSATION THERAPY
     Route: 048
     Dates: start: 20070724, end: 20070802
  2. MORPHINE SULFATE [Concomitant]
     Indication: BACK PAIN
     Route: 048
  3. MORPHINE SULFATE [Concomitant]
     Indication: PAIN IN EXTREMITY

REACTIONS (8)
  - ABNORMAL DREAMS [None]
  - AGITATION [None]
  - DRUG WITHDRAWAL SYNDROME [None]
  - FLUSHING [None]
  - HYPERHIDROSIS [None]
  - INSOMNIA [None]
  - MALAISE [None]
  - MOUTH ULCERATION [None]
